FAERS Safety Report 5655099-1 (Version None)
Quarter: 2008Q1

REPORT INFORMATION
  Report Type: 
  Country: None (occurrence: None)
  Receive Date: 20080307
  Receipt Date: 20071211
  Transmission Date: 20080703
  Serious: No
  Sender: FDA-Public Use
  Company Number: A0698329A

PATIENT
  Age: 49 Year
  Sex: Male

DRUGS (4)
  1. REQUIP [Suspect]
     Indication: RESTLESS LEGS SYNDROME
     Dosage: 4MG AT NIGHT
     Route: 048
     Dates: start: 20040101
  2. LIPITOR [Concomitant]
  3. QUINAPRIL HCL [Concomitant]
  4. UNKNOWN MEDICATION [Concomitant]

REACTIONS (2)
  - DRUG INEFFECTIVE [None]
  - RESTLESS LEGS SYNDROME [None]
